FAERS Safety Report 11781519 (Version 1)
Quarter: 2015Q4

REPORT INFORMATION
  Report Type: Spontaneous
  Country: US (occurrence: US)
  Receive Date: 20151126
  Receipt Date: 20151126
  Transmission Date: 20160305
  Serious: No
  Sender: FDA-Public Use
  Company Number: US-PHARSAFER ASSOCIATES LTD-RAP-0055-2014

PATIENT
  Age: 2 Year
  Sex: Female
  Weight: 10.7 kg

DRUGS (2)
  1. PROCYSBI DELAYED-RELEASE [Suspect]
     Active Substance: CYSTEAMINE BITARTRATE
     Dosage: 300 MG, BID
  2. PROCYSBI DELAYED-RELEASE [Suspect]
     Active Substance: CYSTEAMINE BITARTRATE
     Indication: CYSTINOSIS
     Dosage: 75 MG, BID
     Dates: start: 20131030

REACTIONS (2)
  - Device occlusion [Not Recovered/Not Resolved]
  - Medical device change [Unknown]

NARRATIVE: CASE EVENT DATE: 20131030
